FAERS Safety Report 6466590-2 (Version None)
Quarter: 2009Q4

REPORT INFORMATION
  Report Type: 
  Country: None (occurrence: None)
  Receive Date: 20091202
  Receipt Date: 20091125
  Transmission Date: 20100525
  Serious: Yes (Hospitalization)
  Sender: FDA-Public Use
  Company Number: JP-BAYER-200914624BYL

PATIENT
  Age: 80 Year
  Sex: Female
  Weight: 50 kg

DRUGS (11)
  1. NEXAVAR [Suspect]
     Indication: HEPATIC NEOPLASM MALIGNANT
     Dosage: TOTAL DAILY DOSE: 800 MG  UNIT DOSE: 200 MG
     Route: 048
     Dates: start: 20090814, end: 20090820
  2. SUCRALFATE [Concomitant]
     Dosage: FROM BEFORE ADMINISTRATION
     Route: 048
  3. URSO 250 [Concomitant]
     Dosage: FROM BEFORE ADMINISTRATION
     Route: 048
  4. GRANDAXIN [Concomitant]
     Dosage: FROM BEFORE ADMINISTRATION
     Route: 048
  5. NU-LOTAN [Concomitant]
     Dosage: FROM BEFORE ADMINISTRATION
     Route: 048
  6. AMLODIPINE [Concomitant]
     Dosage: FROM BEFORE ADMINISTRATION
     Route: 048
  7. GASTER [Concomitant]
     Dosage: FROM BEFORE ADMINISTRATION
     Route: 048
  8. MAGMITT [Concomitant]
     Dosage: FROM BEFORE ADMINISTRATION
     Route: 048
  9. CATLEP [Concomitant]
     Indication: BACK PAIN
     Dosage: FROM BEFORE ADMINISTRATION
     Route: 061
  10. SHAKUYAKU-KANZO-TO [Concomitant]
     Indication: MUSCLE SPASMS
     Dosage: FROM BEFORE ADMINISTRATION
     Route: 048
  11. KERATINAMIN [Concomitant]
     Indication: DRY SKIN PROPHYLAXIS
     Route: 061
     Dates: start: 20090809, end: 20090827

REACTIONS (4)
  - BLOOD AMYLASE INCREASED [None]
  - HEPATIC FUNCTION ABNORMAL [None]
  - HYPERTENSION [None]
  - PLATELET COUNT DECREASED [None]
